FAERS Safety Report 21094249 (Version 1)
Quarter: 2022Q3

REPORT INFORMATION
  Report Type: Spontaneous
  Country: FR (occurrence: FR)
  Receive Date: 20220718
  Receipt Date: 20220718
  Transmission Date: 20221027
  Serious: Yes (Other)
  Sender: FDA-Public Use
  Company Number: FR-AstraZeneca-2022A239509

PATIENT
  Age: 61 Year
  Sex: Female

DRUGS (6)
  1. IBRANCE [Suspect]
     Active Substance: PALBOCICLIB
     Dosage: 75 MG
     Route: 048
  2. FASLODEX [Suspect]
     Active Substance: FULVESTRANT
     Indication: Breast cancer metastatic
     Dosage: 500 MG EVERY 4 WEEKS
     Route: 051
     Dates: start: 202101
  3. PULMICORT TURBUHALER [Suspect]
     Active Substance: BUDESONIDE
     Indication: Laryngospasm
     Route: 055
     Dates: start: 20220624
  4. AERIUS (DESLORATADINE) [Concomitant]
     Active Substance: DESLORATADINE
     Dosage: 1 TABLET IN THE EVENING FOR 10 DAYS
  5. ALBUTEROL [Concomitant]
     Active Substance: ALBUTEROL
  6. PREDNISOLONE [Concomitant]
     Active Substance: PREDNISOLONE
     Dosage: 3 TABLETS IN THE MORNING FOR 3 DAYS

REACTIONS (5)
  - Wheezing [Recovered/Resolved]
  - Dyspnoea [Recovered/Resolved]
  - Laryngospasm [Recovered/Resolved]
  - Hypersensitivity [Unknown]
  - Dysphonia [Not Recovered/Not Resolved]

NARRATIVE: CASE EVENT DATE: 20220624
